FAERS Safety Report 8432651-1 (Version None)
Quarter: 2012Q2

REPORT INFORMATION
  Report Type: 
  Country: None (occurrence: None)
  Receive Date: 20120613
  Receipt Date: 20120605
  Transmission Date: 20120825
  Serious: Yes (Hospitalization)
  Sender: FDA-Public Use
  Company Number: US-BAYER-2012-031156

PATIENT
  Age: 35 Year
  Sex: Female
  Weight: 71.202 kg

DRUGS (2)
  1. YAZ [Suspect]
     Indication: CONTRACEPTION
     Dosage: UNK
     Route: 048
     Dates: start: 20070601, end: 20070801
  2. ZOMIG [Concomitant]
     Indication: MIGRAINE
     Dosage: 5 MG, PRN

REACTIONS (13)
  - MUSCULOSKELETAL PAIN [None]
  - MUSCLE SPASMS [None]
  - DEPRESSION [None]
  - CHEST PAIN [None]
  - INJURY [None]
  - PAIN IN EXTREMITY [None]
  - MUSCLE TIGHTNESS [None]
  - NERVOUSNESS [None]
  - PULMONARY EMBOLISM [None]
  - EMOTIONAL DISTRESS [None]
  - DIZZINESS [None]
  - FEAR OF DEATH [None]
  - ANXIETY [None]
